FAERS Safety Report 5023587-7 (Version None)
Quarter: 2006Q2

REPORT INFORMATION
  Report Type: 
  Country: None (occurrence: None)
  Receive Date: 20060428
  Receipt Date: 20060117
  Transmission Date: 20061013
  Serious: No
  Sender: FDA-Public Use
  Company Number: WAES 0601USA01807

PATIENT
  Sex: Female

DRUGS (4)
  1. EMEND [Suspect]
     Indication: CHEMOTHERAPY
     Dosage: PO
     Route: 048
     Dates: start: 20040101
  2. EMEND [Suspect]
     Indication: PROPHYLAXIS
     Dosage: PO
     Route: 048
     Dates: start: 20040101
  3. [THERAPY UNSPECIFIED] [Concomitant]
  4. ANTINEOPLASTIC (UNSPECIFIED) [Concomitant]

REACTIONS (2)
  - CARDIAC DISORDER [None]
  - NAUSEA [None]
